FAERS Safety Report 8676617 (Version 2)
Quarter: 2013Q4

REPORT INFORMATION
  Report Type: Report from Study
  Country: US (occurrence: US)
  Receive Date: 20120723
  Receipt Date: 20131101
  Transmission Date: 20140711
  Serious: No
  Sender: FDA-Public Use
  Company Number: US-009507513-1207USA000591

PATIENT
  Sex: Male
  Weight: 70.75 kg

DRUGS (7)
  1. REBETOL [Suspect]
     Indication: HEPATITIS C
     Dosage: 6 DF, QD
     Route: 048
  2. REBETOL [Suspect]
     Dosage: UNK
  3. GS-5885 [Concomitant]
     Indication: HEPATITIS C
     Dosage: 30 MG, UNK
  4. PEGINTERFERON ALFA-2A [Concomitant]
     Indication: HEPATITIS C
     Route: 058
  5. INVESTIGATIONAL DRUG (UNSPECIFIED) [Concomitant]
     Indication: HEPATITIS C
     Dosage: 200 MG, QD
     Route: 048
     Dates: start: 20120507, end: 20120604
  6. INVESTIGATIONAL DRUG (UNSPECIFIED) [Concomitant]
     Dosage: 60 DF TOTAL, UNK
     Route: 048
     Dates: start: 20120604, end: 20120622
  7. INVESTIGATIONAL DRUG (UNSPECIFIED) [Concomitant]
     Dosage: 2 DF, QD
     Route: 048

REACTIONS (1)
  - Overdose [Unknown]
